FAERS Safety Report 15795408 (Version 1)
Quarter: 2019Q1

REPORT INFORMATION
  Report Type: Spontaneous
  Country: US (occurrence: US)
  Receive Date: 20190107
  Receipt Date: 20190107
  Transmission Date: 20190417
  Serious: No
  Sender: FDA-Public Use
  Company Number: US-AMREGENT-20182029

PATIENT
  Age: 34 Year
  Sex: Female
  Weight: 75.75 kg

DRUGS (9)
  1. PRENATAL VITAMINS [Concomitant]
     Active Substance: VITAMINS
     Dosage: 28 MG IRON-800 MCG DAILY
     Route: 048
  2. FAMOTIDINE. [Concomitant]
     Active Substance: FAMOTIDINE
     Dosage: 20 MG X2 DAILY PRN
     Route: 048
     Dates: start: 20181023
  3. DICLEGIS [Concomitant]
     Active Substance: DOXYLAMINE SUCCINATE\PYRIDOXINE HYDROCHLORIDE
     Dosage: UNKNOWN
     Route: 065
  4. METOPROLOL TARTRATE. [Concomitant]
     Active Substance: METOPROLOL TARTRATE
     Dosage: 25 MG, 1/2 TAB (12.5)X2 DAILY
     Route: 048
     Dates: start: 20181024
  5. PROZAC [Concomitant]
     Active Substance: FLUOXETINE HYDROCHLORIDE
     Dosage: 40 MG DAILY MORNING
     Route: 048
     Dates: start: 20181023
  6. HYDROXYPROGESTERONE CAPROATE INJECTION, USP (0517-1767-01) [Suspect]
     Active Substance: HYDROXYPROGESTERONE CAPROATE
     Dosage: 250 MG/ML WEEKLY, INJECT 1 ML
     Route: 030
     Dates: start: 20181022, end: 20181022
  7. RANITIDINE. [Concomitant]
     Active Substance: RANITIDINE
     Dosage: UNKNOWN
     Route: 065
  8. ASPIRIN. [Concomitant]
     Active Substance: ASPIRIN
     Dosage: 81 MG DAILY
     Route: 048
     Dates: start: 20180921
  9. PROCHLORPERAZINE MALEATE. [Concomitant]
     Active Substance: PROCHLORPERAZINE MALEATE
     Dosage: 10 MG X3 DAILY PRN
     Route: 048
     Dates: start: 20181023

REACTIONS (4)
  - Unevaluable event [Recovered/Resolved]
  - Maternal exposure during pregnancy [Unknown]
  - Tremor [Recovered/Resolved]
  - Nausea [Recovered/Resolved]

NARRATIVE: CASE EVENT DATE: 201810
